FAERS Safety Report 6540847-9 (Version None)
Quarter: 2010Q1

REPORT INFORMATION
  Report Type: 
  Country: None (occurrence: None)
  Receive Date: 20100118
  Receipt Date: 20100110
  Transmission Date: 20100710
  Serious: Yes (Hospitalization)
  Sender: FDA-Public Use
  Company Number: PHHY2010MX01245

PATIENT
  Age: 76 Year
  Sex: Female

DRUGS (2)
  1. GALVUS MET [Suspect]
     Indication: DIABETES MELLITUS
     Dosage: 1 TABLET (500/50 MG) PER DAY
     Dates: start: 20091101, end: 20091101
  2. INSULIN [Concomitant]

REACTIONS (3)
  - DEHYDRATION [None]
  - DYSPEPSIA [None]
  - HEART RATE DECREASED [None]
